FAERS Safety Report 5365603-9 (Version None)
Quarter: 2007Q2

REPORT INFORMATION
  Report Type: 
  Country: None (occurrence: None)
  Receive Date: 20070621
  Receipt Date: 20070618
  Transmission Date: 20071010
  Serious: Yes (Disabling)
  Sender: FDA-Public Use
  Company Number: AU-AVENTIS-200621617GDDC

PATIENT
  Age: 53 Year
  Sex: Male

DRUGS (13)
  1. LANTUS [Suspect]
     Route: 058
     Dates: start: 20061019
  2. RENITEC PLUS [Concomitant]
     Indication: HYPERTENSION
     Dosage: DOSE: 20/6
     Route: 048
  3. RENITEC PLUS [Concomitant]
     Dosage: DOSE: 20/6
     Route: 048
     Dates: start: 20050101
  4. RENITEC PLUS [Concomitant]
     Indication: RENAL IMPAIRMENT
     Dosage: DOSE: 20/6
     Route: 048
  5. RENITEC PLUS [Concomitant]
     Dosage: DOSE: 20/6
     Route: 048
     Dates: start: 20050101
  6. ATACAND [Concomitant]
     Indication: HYPERTENSION
     Route: 048
  7. LIPITOR [Concomitant]
     Route: 048
  8. ROSIGLITAZONE [Concomitant]
     Route: 048
     Dates: start: 20050101
  9. GLICLAZIDE [Concomitant]
     Indication: DIABETES MELLITUS
     Route: 048
  10. CANDESARTAN [Concomitant]
     Indication: HYPERTENSION
     Route: 048
  11. CANDESARTAN [Concomitant]
     Indication: RENAL IMPAIRMENT
     Route: 048
  12. VITAMIN B                          /90046501/ [Concomitant]
  13. AVANDIA [Concomitant]
     Dosage: DOSE: TITRATED DOSE
     Route: 048
     Dates: start: 20070101

REACTIONS (2)
  - ABNORMAL FAECES [None]
  - MUSCLE SPASMS [None]
